FAERS Safety Report 15222402 (Version 1)
Quarter: 2018Q3

REPORT INFORMATION
  Report Type: Spontaneous
  Country: US (occurrence: US)
  Receive Date: 20180705
  Receipt Date: 20180705
  Transmission Date: 20181010
  Serious: Yes (Other)
  Sender: FDA-Public Use
  Company Number: None

PATIENT
  Age: 60 Year
  Sex: Female
  Weight: 47.88 kg

DRUGS (23)
  1. TYKERB [Suspect]
     Active Substance: LAPATINIB DITOSYLATE
     Indication: BREAST CANCER
     Route: 048
     Dates: start: 20180605
  2. LIDOCAINE?PAK [Concomitant]
  3. IBUPROFEN. [Concomitant]
     Active Substance: IBUPROFEN
  4. PROCHLORPERAZINE. [Concomitant]
     Active Substance: PROCHLORPERAZINE
  5. LETROZOLE. [Suspect]
     Active Substance: LETROZOLE
     Indication: BREAST CANCER
     Route: 048
  6. ESTER?C/BIOFLAVONOIDS [Concomitant]
  7. EXEMESTANE. [Concomitant]
     Active Substance: EXEMESTANE
  8. PROMETHAZINE [Concomitant]
     Active Substance: PROMETHAZINE\PROMETHAZINE HYDROCHLORIDE
  9. ACETIC ACID. [Concomitant]
     Active Substance: ACETIC ACID
  10. CEPHELAXIN [Concomitant]
  11. ECHINACEA [Concomitant]
     Active Substance: ECHINACEA, UNSPECIFIED
  12. NOVOLOG [Concomitant]
     Active Substance: INSULIN ASPART
  13. OMEPRAZOLE. [Concomitant]
     Active Substance: OMEPRAZOLE
  14. ASPIRIN. [Concomitant]
     Active Substance: ASPIRIN
  15. MAGNESIUM [Concomitant]
     Active Substance: MAGNESIUM
  16. MEGESTROL [Concomitant]
     Active Substance: MEGESTROL
  17. ONDANSETRON [Concomitant]
     Active Substance: ONDANSETRON
  18. GARLIC. [Concomitant]
     Active Substance: GARLIC
  19. OXYCODONE [Concomitant]
     Active Substance: OXYCODONE
  20. FLUTICASONE. [Concomitant]
     Active Substance: FLUTICASONE
  21. GABAPENTIN. [Concomitant]
     Active Substance: GABAPENTIN
  22. LATANOPROST. [Concomitant]
     Active Substance: LATANOPROST
  23. PREDNISONE. [Concomitant]
     Active Substance: PREDNISONE

REACTIONS (5)
  - Nausea [None]
  - Chest pain [None]
  - Abdominal pain lower [None]
  - Vomiting [None]
  - Headache [None]
